FAERS Safety Report 24834777 (Version 1)
Quarter: 2025Q1

REPORT INFORMATION
  Report Type: Spontaneous
  Country: US (occurrence: US)
  Receive Date: 20250113
  Receipt Date: 20250113
  Transmission Date: 20250408
  Serious: Yes (Life-Threatening, Hospitalization)
  Sender: JUBILANT
  Company Number: US-JUBILANT CADISTA PHARMACEUTICALS-2024JUB00106

PATIENT
  Age: 68 Year
  Sex: Female

DRUGS (8)
  1. PREDNISONE [Suspect]
     Active Substance: PREDNISONE
     Indication: Arthritis
     Dosage: 40 MG, 1X/DAY
  2. PREDNISONE [Suspect]
     Active Substance: PREDNISONE
     Dosage: 20 MG, 1X/DAY
  3. PREDNISONE [Suspect]
     Active Substance: PREDNISONE
     Dosage: 10 MG, 1X/DAY
  4. PREDNISONE [Suspect]
     Active Substance: PREDNISONE
     Dosage: FOUR WEEKS LATER; 20 MG, 1X/DAY
  5. PREDNISONE [Suspect]
     Active Substance: PREDNISONE
     Dosage: 15 MG, 1X/DAY
  6. PREDNISONE [Suspect]
     Active Substance: PREDNISONE
     Dosage: 10 MG, 1X/DAY
  7. PREDNISONE [Suspect]
     Active Substance: PREDNISONE
     Dosage: 5 MG, 1X/DAY
  8. HYDROXYCHLOROQUINE [Concomitant]
     Active Substance: HYDROXYCHLOROQUINE

REACTIONS (3)
  - Hepatic encephalopathy [Unknown]
  - Acute hepatic failure [Unknown]
  - Hepatitis B reactivation [Unknown]
